FAERS Safety Report 5760872-5 (Version None)
Quarter: 2008Q2

REPORT INFORMATION
  Report Type: 
  Country: None (occurrence: None)
  Receive Date: 20080606
  Receipt Date: 20080602
  Transmission Date: 20081010
  Serious: Yes (Other)
  Sender: FDA-Public Use
  Company Number: US-ASTRAZENECA-2008UW11083

PATIENT
  Age: 813 Month
  Sex: Male
  Weight: 90.1 kg

DRUGS (8)
  1. LISINOPRIL [Suspect]
     Route: 048
  2. AZD2171 [Suspect]
     Indication: PROSTATE CANCER METASTATIC
     Route: 048
     Dates: start: 20080409, end: 20080506
  3. AZD2171 [Suspect]
     Route: 048
     Dates: start: 20080507
  4. AMLODIPINE [Concomitant]
  5. ATENOLOL [Concomitant]
  6. FLOMAX [Concomitant]
  7. PERCOCET [Concomitant]
  8. PRAVACHOL [Concomitant]

REACTIONS (1)
  - PROTEINURIA [None]
